FAERS Safety Report 7605894-4 (Version None)
Quarter: 2011Q3

REPORT INFORMATION
  Report Type: 
  Country: None (occurrence: None)
  Receive Date: 20110713
  Receipt Date: 20110706
  Transmission Date: 20111222
  Serious: Yes (Death, Life-Threatening)
  Sender: FDA-Public Use
  Company Number: JP-BAYER-2011-045574

PATIENT
  Age: 84 Year
  Sex: Male
  Weight: 48 kg

DRUGS (5)
  1. AMLODIPINE BESYLATE [Concomitant]
     Indication: HYPERTENSION
     Dosage: DAILY DOSE 5 MG
     Route: 048
  2. NEXAVAR [Suspect]
     Indication: RENAL CELL CARCINOMA
     Dosage: 200 MG, BID
     Route: 048
     Dates: start: 20110201, end: 20110522
  3. TRICHLORMETHIAZIDE [Concomitant]
     Indication: HYPERTENSION
     Dosage: DAILY DOSE 2 MG
     Route: 048
  4. MONTELUKAST SODIUM [Concomitant]
     Indication: ASTHMA
     Dosage: DAILY DOSE 10 MG
     Route: 048
  5. TULOBUTEROL [Concomitant]
     Indication: ASTHMA
     Dosage: DAILY DOSE 2 MG
     Route: 062

REACTIONS (1)
  - INTERSTITIAL LUNG DISEASE [None]
